FAERS Safety Report 4456517-7 (Version None)
Quarter: 2004Q3

REPORT INFORMATION
  Report Type: 
  Country: None (occurrence: None)
  Receive Date: 20040923
  Receipt Date: 20040914
  Transmission Date: 20050211
  Serious: Yes (Hospitalization)
  Sender: FDA-Public Use
  Company Number: JP-JNJFOC-20040704574

PATIENT
  Sex: Male
  Weight: 42 kg

DRUGS (8)
  1. REMICADE [Suspect]
     Indication: RHEUMATOID ARTHRITIS
     Route: 042
  2. ANTIBIOTICS [Concomitant]
     Indication: DRUG USE FOR UNKNOWN INDICATION
  3. PREDNISOLONE [Suspect]
     Route: 049
  4. METHOTREXATE [Suspect]
     Route: 049
  5. METHOTREXATE [Suspect]
     Route: 049
  6. VOLTAREN-XR [Concomitant]
     Route: 049
  7. GASTER D [Concomitant]
     Route: 049
  8. CYTOTEC [Concomitant]
     Route: 049

REACTIONS (2)
  - PLATELET COUNT INCREASED [None]
  - PNEUMONITIS CRYPTOCOCCAL [None]
